FAERS Safety Report 7303568-0 (Version None)
Quarter: 2011Q1

REPORT INFORMATION
  Report Type: 
  Country: None (occurrence: None)
  Receive Date: 20110221
  Receipt Date: 20110217
  Transmission Date: 20110831
  Serious: Yes (Death)
  Sender: FDA-Public Use
  Company Number: PHHY2011JP12979

PATIENT

DRUGS (3)
  1. DIOVAN [Suspect]
     Dosage: 40 MG, DAILY
  2. DIOVAN [Suspect]
     Dosage: 80 MG, DAILY
  3. CO-DIOVAN [Suspect]
     Dosage: 01 DF, DAILY
     Route: 048

REACTIONS (2)
  - PNEUMONIA [None]
  - DRUG ERUPTION [None]
